FAERS Safety Report 20342715 (Version 1)
Quarter: 2022Q1

REPORT INFORMATION
  Report Type: Spontaneous
  Country: CA (occurrence: CA)
  Receive Date: 20220117
  Receipt Date: 20220117
  Transmission Date: 20220423
  Serious: Yes (Hospitalization, Other)
  Sender: FDA-Public Use
  Company Number: CA-BAUSCH-BL-2022-000923

PATIENT
  Age: 48 Year
  Sex: Female
  Weight: 106 kg

DRUGS (66)
  1. DEXAMETHASONE [Suspect]
     Active Substance: DEXAMETHASONE
     Indication: Supportive care
     Route: 048
  2. DEXAMETHASONE [Suspect]
     Active Substance: DEXAMETHASONE
     Route: 048
  3. DEXAMETHASONE [Suspect]
     Active Substance: DEXAMETHASONE
     Route: 048
  4. LORAZEPAM [Suspect]
     Active Substance: LORAZEPAM
     Indication: Tardive dyskinesia
     Route: 048
  5. LORAZEPAM [Suspect]
     Active Substance: LORAZEPAM
     Route: 048
  6. LORAZEPAM [Suspect]
     Active Substance: LORAZEPAM
     Route: 048
  7. LORAZEPAM [Suspect]
     Active Substance: LORAZEPAM
     Route: 048
  8. METOCLOPRAMIDE [Suspect]
     Active Substance: METOCLOPRAMIDE
     Indication: Tardive dyskinesia
     Dosage: 4 EVERY 1 DAYS
     Route: 048
  9. METOCLOPRAMIDE [Suspect]
     Active Substance: METOCLOPRAMIDE
     Dosage: 1 EVERY 6 HOURS
     Route: 048
  10. METOCLOPRAMIDE [Suspect]
     Active Substance: METOCLOPRAMIDE
     Dosage: 1 EVERY 1 DAYS
     Route: 048
  11. ACETAMINOPHEN AND CODEINE [Suspect]
     Active Substance: ACETAMINOPHEN\CODEINE PHOSPHATE
     Indication: Tardive dyskinesia
     Route: 065
  12. ACETAMINOPHEN AND CODEINE [Suspect]
     Active Substance: ACETAMINOPHEN\CODEINE PHOSPHATE
     Route: 065
  13. ACETAMINOPHEN AND CODEINE [Suspect]
     Active Substance: ACETAMINOPHEN\CODEINE PHOSPHATE
     Route: 065
  14. BETAMETHASONE [Suspect]
     Active Substance: BETAMETHASONE
     Indication: Tardive dyskinesia
     Route: 048
  15. BETAMETHASONE [Suspect]
     Active Substance: BETAMETHASONE
     Route: 065
  16. DOXORUBICIN [Suspect]
     Active Substance: DOXORUBICIN
     Indication: Breast cancer
     Dosage: SOLUTION INTRAVENOUS
     Route: 042
  17. DOXORUBICIN [Suspect]
     Active Substance: DOXORUBICIN
     Dosage: SOLUTION INTRAVENOUS
     Route: 042
  18. DOXORUBICIN [Suspect]
     Active Substance: DOXORUBICIN
     Dosage: SOLUTION INTRAVENOUS
     Route: 042
  19. DOXORUBICIN [Suspect]
     Active Substance: DOXORUBICIN
     Dosage: SOLUTION INTRAVENOUS
     Route: 042
  20. EMEND [Suspect]
     Active Substance: APREPITANT
     Indication: Supportive care
     Route: 048
  21. EMEND [Suspect]
     Active Substance: APREPITANT
     Route: 048
  22. EMEND [Suspect]
     Active Substance: APREPITANT
     Route: 048
  23. EMEND [Suspect]
     Active Substance: APREPITANT
     Route: 048
  24. EMEND [Suspect]
     Active Substance: APREPITANT
     Route: 048
  25. EMEND [Suspect]
     Active Substance: APREPITANT
     Route: 048
  26. ENOXAPARIN [Suspect]
     Active Substance: ENOXAPARIN
     Indication: Tardive dyskinesia
     Dosage: 1 EVERY 1 DAYS
     Route: 058
  27. ENOXAPARIN [Suspect]
     Active Substance: ENOXAPARIN
     Route: 058
  28. LEVOFLOXACIN [Suspect]
     Active Substance: LEVOFLOXACIN
     Indication: Tardive dyskinesia
     Route: 048
  29. LEVOFLOXACIN [Suspect]
     Active Substance: LEVOFLOXACIN
     Route: 048
  30. NEULASTA [Suspect]
     Active Substance: PEGFILGRASTIM
     Indication: Supportive care
     Route: 058
  31. NEULASTA [Suspect]
     Active Substance: PEGFILGRASTIM
     Route: 058
  32. NEULASTA [Suspect]
     Active Substance: PEGFILGRASTIM
     Route: 058
  33. NEULASTA [Suspect]
     Active Substance: PEGFILGRASTIM
     Route: 058
  34. NEUPOGEN [Suspect]
     Active Substance: FILGRASTIM
     Indication: Supportive care
     Route: 048
  35. NEUPOGEN [Suspect]
     Active Substance: FILGRASTIM
     Route: 065
  36. NEUPOGEN [Suspect]
     Active Substance: FILGRASTIM
     Route: 065
  37. NEUPOGEN [Suspect]
     Active Substance: FILGRASTIM
     Route: 048
  38. NEUPOGEN [Suspect]
     Active Substance: FILGRASTIM
     Dosage: SOLUTION INTRAVENOUS
     Route: 065
  39. ONDANSETRON [Suspect]
     Active Substance: ONDANSETRON
     Indication: Supportive care
     Route: 048
  40. ONDANSETRON [Suspect]
     Active Substance: ONDANSETRON
     Route: 065
  41. ONDANSETRON [Suspect]
     Active Substance: ONDANSETRON
     Route: 048
  42. ONDANSETRON [Suspect]
     Active Substance: ONDANSETRON
     Route: 048
  43. ONDANSETRON [Suspect]
     Active Substance: ONDANSETRON
     Route: 048
  44. ONDANSETRON [Suspect]
     Active Substance: ONDANSETRON
     Route: 048
  45. PACLITAXEL [Suspect]
     Active Substance: PACLITAXEL
     Indication: Supportive care
     Route: 042
  46. PACLITAXEL [Suspect]
     Active Substance: PACLITAXEL
     Indication: Breast cancer
     Route: 042
  47. PACLITAXEL [Suspect]
     Active Substance: PACLITAXEL
     Route: 042
  48. PACLITAXEL [Suspect]
     Active Substance: PACLITAXEL
     Route: 042
  49. PACLITAXEL [Suspect]
     Active Substance: PACLITAXEL
     Route: 042
  50. PACLITAXEL [Suspect]
     Active Substance: PACLITAXEL
     Dosage: LIQUID INTRAVENOUS
     Route: 042
  51. PACLITAXEL [Suspect]
     Active Substance: PACLITAXEL
     Route: 042
  52. CYCLOPHOSPHAMIDE [Suspect]
     Active Substance: CYCLOPHOSPHAMIDE
     Indication: Tardive dyskinesia
     Route: 042
  53. CYCLOPHOSPHAMIDE [Suspect]
     Active Substance: CYCLOPHOSPHAMIDE
     Indication: Breast cancer
     Route: 042
  54. CYCLOPHOSPHAMIDE [Suspect]
     Active Substance: CYCLOPHOSPHAMIDE
     Route: 042
  55. CYCLOPHOSPHAMIDE [Suspect]
     Active Substance: CYCLOPHOSPHAMIDE
     Route: 065
  56. CYCLOPHOSPHAMIDE [Suspect]
     Active Substance: CYCLOPHOSPHAMIDE
     Route: 042
  57. RANITIDINE HYDROCHLORIDE [Suspect]
     Active Substance: RANITIDINE HYDROCHLORIDE
     Indication: Tardive dyskinesia
     Route: 048
  58. RANITIDINE HYDROCHLORIDE [Suspect]
     Active Substance: RANITIDINE HYDROCHLORIDE
     Route: 048
  59. RANITIDINE HYDROCHLORIDE [Suspect]
     Active Substance: RANITIDINE HYDROCHLORIDE
     Route: 048
  60. RANITIDINE HYDROCHLORIDE [Suspect]
     Active Substance: RANITIDINE HYDROCHLORIDE
     Route: 048
  61. TRASTUZUMAB [Suspect]
     Active Substance: TRASTUZUMAB
     Indication: Tardive dyskinesia
     Route: 065
  62. TRASTUZUMAB [Suspect]
     Active Substance: TRASTUZUMAB
     Route: 065
  63. TRASTUZUMAB [Suspect]
     Active Substance: TRASTUZUMAB
     Route: 065
  64. TRASTUZUMAB [Suspect]
     Active Substance: TRASTUZUMAB
     Route: 065
  65. TRASTUZUMAB [Suspect]
     Active Substance: TRASTUZUMAB
     Route: 065
  66. TRASTUZUMAB [Suspect]
     Active Substance: TRASTUZUMAB
     Route: 048

REACTIONS (12)
  - Atelectasis [Recovered/Resolved]
  - Gastrointestinal disorder [Recovered/Resolved]
  - Hypoxia [Recovered/Resolved]
  - Cough [Recovered/Resolved]
  - Computerised tomogram thorax [Recovered/Resolved]
  - Computerised tomogram thorax abnormal [Recovered/Resolved]
  - Pyrexia [Recovered/Resolved]
  - Fatigue [Recovered/Resolved]
  - Dyspnoea [Recovered/Resolved]
  - Nausea [Recovered/Resolved]
  - Rash [Recovered/Resolved]
  - Off label use [Recovered/Resolved]
